FAERS Safety Report 7021891-4 (Version None)
Quarter: 2010Q3

REPORT INFORMATION
  Report Type: 
  Country: None (occurrence: None)
  Receive Date: 20100930
  Receipt Date: 20100917
  Transmission Date: 20110219
  Serious: Yes (Hospitalization)
  Sender: FDA-Public Use
  Company Number: US-ELI_LILLY_AND_COMPANY-US201005006969

PATIENT
  Sex: Male

DRUGS (7)
  1. FORTEO [Suspect]
     Indication: OSTEOPOROSIS
     Dosage: 20 UG, DAILY (1/D)
     Dates: start: 20091031, end: 20100816
  2. DILANTIN [Concomitant]
     Dosage: 100 MG, EACH MORNING
  3. DILANTIN [Concomitant]
     Dosage: 200 MG, EACH EVENING
  4. PHENOBARBITAL TAB [Concomitant]
     Dosage: 60 MG, 2/D
  5. LEXAPRO [Concomitant]
     Dosage: 20 MG, EACH EVENING
  6. CENTRUM [Concomitant]
  7. STOOL SOFTENER [Concomitant]
     Dosage: UNK, DAILY (1/D)

REACTIONS (6)
  - BLOOD PARATHYROID HORMONE INCREASED [None]
  - DECUBITUS ULCER [None]
  - FALL [None]
  - FEMUR FRACTURE [None]
  - SKIN DISORDER [None]
  - SKIN INJURY [None]
